FAERS Safety Report 4453283-6 (Version None)
Quarter: 2004Q3

REPORT INFORMATION
  Report Type: 
  Country: None (occurrence: None)
  Receive Date: 20040902
  Receipt Date: 20040514
  Transmission Date: 20050211
  Serious: No
  Sender: FDA-Public Use
  Company Number: 200417892BWH

PATIENT
  Age: 83 Year
  Sex: Male

DRUGS (20)
  1. LEVITRA [Suspect]
     Indication: ERECTILE DYSFUNCTION
     Dosage: 20 MG, ONCE, ORAL
     Route: 048
     Dates: start: 20040509
  2. NIFEREX [Concomitant]
  3. METFORMIN [Concomitant]
  4. QUININE SULFATE [Concomitant]
  5. DYAZIDE [Concomitant]
  6. ALLOPURINOL [Concomitant]
  7. ZOCOR [Concomitant]
  8. AVANDIA [Concomitant]
  9. AVODART [Concomitant]
  10. CALCIUM [Concomitant]
  11. SALMON OIL [Concomitant]
  12. MAGNESIUM [Concomitant]
  13. VITAMIN E [Concomitant]
  14. GLUCOSAMINE SULFATE [Concomitant]
  15. BETA CAROTENE [Concomitant]
  16. VITAMIN C [Concomitant]
  17. B12 [Concomitant]
  18. B6 [Concomitant]
  19. FOLIC ACID [Concomitant]
  20. VIAGRA [Concomitant]

REACTIONS (1)
  - ERECTILE DYSFUNCTION [None]
